FAERS Safety Report 8535464-5 (Version None)
Quarter: 2012Q3

REPORT INFORMATION
  Report Type: 
  Country: None (occurrence: None)
  Receive Date: 20120718
  Receipt Date: 20120718
  Transmission Date: 20120928
  Serious: Yes (Life-Threatening, Disabling)
  Sender: FDA-Public Use
  Company Number: None

PATIENT
  Age: 23 Year
  Sex: Male
  Weight: 56.8 kg

DRUGS (7)
  1. PRIMAQUINE [Concomitant]
  2. LINDANE [Concomitant]
  3. ERYTHROMYCIN [Concomitant]
  4. BISMUTH SUBSALICYLATE IN OIL INJ [Concomitant]
  5. OTC ANALGESICS [Concomitant]
  6. MEFLOQUINE HYDROCHLORIDE [Suspect]
     Indication: MALARIA PROPHYLAXIS
     Dosage: 250 MG WEEKLY ORAL
     Route: 048
     Dates: start: 20101001, end: 20110201
  7. DOXYCYCLINE HCL [Concomitant]

REACTIONS (9)
  - DIZZINESS [None]
  - HEADACHE [None]
  - VISUAL IMPAIRMENT [None]
  - PRURITUS [None]
  - DEPRESSION [None]
  - ANXIETY [None]
  - TINNITUS [None]
  - INSOMNIA [None]
  - RASH [None]
